FAERS Safety Report 4493167-0 (Version None)
Quarter: 2004Q4

REPORT INFORMATION
  Report Type: 
  Country: None (occurrence: None)
  Receive Date: 20041029
  Receipt Date: 20041021
  Transmission Date: 20050328
  Serious: Yes (Other)
  Sender: FDA-Public Use
  Company Number: 2004240945US

PATIENT
  Age: 68 Year
  Sex: Male
  Weight: 74.8 kg

DRUGS (7)
  1. CELEBREX [Suspect]
     Indication: INTERVERTEBRAL DISC PROTRUSION
     Dosage: 200 MG, QD, ORAL; 1/2 CAPSULE
     Route: 048
     Dates: start: 20041001, end: 20041001
  2. LANOXIN [Concomitant]
  3. TOPROL-XL [Concomitant]
  4. MULTIVITAMIN [Concomitant]
  5. CENTRUM (VITAMIN NOS) [Concomitant]
  6. GLUCOSAMINE [Concomitant]
  7. DARVOCET-N 100 [Concomitant]

REACTIONS (3)
  - ATRIAL FIBRILLATION [None]
  - DISEASE RECURRENCE [None]
  - MEDICATION ERROR [None]
